FAERS Safety Report 19580500 (Version 1)
Quarter: 2021Q3

REPORT INFORMATION
  Report Type: Spontaneous
  Country: CN (occurrence: CN)
  Receive Date: 20210719
  Receipt Date: 20210719
  Transmission Date: 20211014
  Serious: Yes (Death)
  Sender: FDA-Public Use
  Company Number: CN-ELI_LILLY_AND_COMPANY-CN202107005666

PATIENT
  Sex: Female
  Weight: 75 kg

DRUGS (4)
  1. HUMALOG [Suspect]
     Active Substance: INSULIN LISPRO
     Indication: DIABETES MELLITUS
     Dosage: 12 INTERNATIONAL UNIT, EACH MORNING
     Route: 058
     Dates: start: 201911
  2. INSULIN ASPART 30 [Concomitant]
     Dosage: 14 INTERNATIONAL UNIT, EACH EVENING
     Route: 058
  3. INSULIN ASPART 30 [Concomitant]
     Indication: DIABETES MELLITUS
     Dosage: 12 INTERNATIONAL UNIT, EACH MORNING
     Route: 058
     Dates: start: 2020
  4. HUMALOG [Suspect]
     Active Substance: INSULIN LISPRO
     Dosage: 14 INTERNATIONAL UNIT, EACH EVENING
     Route: 058
     Dates: start: 201911

REACTIONS (1)
  - Death [Fatal]

NARRATIVE: CASE EVENT DATE: 20210619
